FAERS Safety Report 13260062 (Version 1)
Quarter: 2017Q1

REPORT INFORMATION
  Report Type: Spontaneous
  Country: US (occurrence: US)
  Receive Date: 20170222
  Receipt Date: 20170222
  Transmission Date: 20170428
  Serious: Yes (Death)
  Sender: FDA-Public Use
  Company Number: None

PATIENT
  Age: 28 Year
  Sex: Male
  Weight: 90.8 kg

DRUGS (1)
  1. FLUCONAZOLE 200MG TABLET [Suspect]
     Active Substance: FLUCONAZOLE
     Indication: RASH
     Dosage: ?          QUANTITY:2 TABS;?
     Dates: start: 20161111, end: 20161112

REACTIONS (7)
  - Psychotic disorder [None]
  - Dizziness [None]
  - Ear congestion [None]
  - Completed suicide [None]
  - Chest pain [None]
  - Hallucination [None]
  - Tinnitus [None]

NARRATIVE: CASE EVENT DATE: 20161112
